FAERS Safety Report 9133798 (Version 1)
Quarter: 2013Q1

REPORT INFORMATION
  Report Type: Spontaneous
  Country: GB (occurrence: GB)
  Receive Date: 20130303
  Receipt Date: 20130303
  Transmission Date: 20140127
  Serious: Yes (Other)
  Sender: FDA-Public Use
  Company Number: GB-TEVA-389093ISR

PATIENT
  Age: 69 Year
  Sex: Male
  Weight: 68.03 kg

DRUGS (1)
  1. PRAVASTATIN [Suspect]
     Indication: BLOOD CHOLESTEROL INCREASED
     Route: 048
     Dates: start: 20121117, end: 20130217

REACTIONS (6)
  - Insomnia [Recovering/Resolving]
  - Dyspepsia [Recovering/Resolving]
  - Myalgia [Recovering/Resolving]
  - Flatulence [Recovering/Resolving]
  - Arthralgia [Recovering/Resolving]
  - Tendonitis [Recovering/Resolving]
